FAERS Safety Report 7430460-3 (Version None)
Quarter: 2011Q2

REPORT INFORMATION
  Report Type: 
  Country: None (occurrence: None)
  Receive Date: 20110421
  Receipt Date: 20100803
  Transmission Date: 20111010
  Serious: Yes (Other)
  Sender: FDA-Public Use
  Company Number: US-ASTRAZENECA-2010SE23606

PATIENT
  Age: 22476 Day
  Sex: Male

DRUGS (2)
  1. CRESTOR [Suspect]
     Indication: HYPERLIPIDAEMIA
     Route: 048
  2. TOPROL-XL [Suspect]
     Indication: HYPERTENSION
     Route: 048

REACTIONS (1)
  - DIABETES MELLITUS [None]
